FAERS Safety Report 7527690-9 (Version None)
Quarter: 2011Q2

REPORT INFORMATION
  Report Type: 
  Country: None (occurrence: None)
  Receive Date: 20110607
  Receipt Date: 20110601
  Transmission Date: 20111010
  Serious: Yes (Death, Life-Threatening, Hospitalization, Other)
  Sender: FDA-Public Use
  Company Number: PHEH2006US05809

PATIENT
  Sex: Female
  Weight: 68 kg

DRUGS (21)
  1. ZOMETA [Suspect]
     Indication: NEOPLASM MALIGNANT
  2. PROCRIT [Concomitant]
  3. TYLENOL-500 [Concomitant]
  4. VICODIN [Concomitant]
  5. METOPROLOL TARTRATE [Concomitant]
  6. LASIX [Concomitant]
  7. MOTRIN [Concomitant]
  8. NORMODYNE [Concomitant]
  9. SERTRALINE HYDROCHLORIDE [Concomitant]
  10. PANTOPRAZOLE [Concomitant]
  11. STRESSTABS [Concomitant]
  12. COMBIVENT [Concomitant]
  13. CELEBREX [Concomitant]
  14. TOLTERODINE TARTRATE [Concomitant]
  15. POTASSIUM CHLORIDE [Concomitant]
  16. ANTINEOPLASTIC AGENTS [Concomitant]
  17. MYLANTA                                 /AUS/ [Concomitant]
  18. MILK OF MAGNESIA TAB [Concomitant]
  19. NEXIUM [Concomitant]
  20. LORAZEPAM [Concomitant]
  21. OXYCODONE HCL [Concomitant]

REACTIONS (73)
  - NEOPLASM PROGRESSION [None]
  - LYMPHATIC OBSTRUCTION [None]
  - STOMATITIS [None]
  - UNRESPONSIVE TO STIMULI [None]
  - DEPRESSED LEVEL OF CONSCIOUSNESS [None]
  - ADRENAL NEOPLASM [None]
  - HIATUS HERNIA [None]
  - GAIT DISTURBANCE [None]
  - BALANCE DISORDER [None]
  - OEDEMA [None]
  - CARDIOMEGALY [None]
  - HEPATIC LESION [None]
  - VASCULAR CALCIFICATION [None]
  - LUNG NEOPLASM MALIGNANT [None]
  - DECREASED ACTIVITY [None]
  - PRIMARY SEQUESTRUM [None]
  - FISTULA [None]
  - RESPIRATORY DISTRESS [None]
  - MALIGNANT PLEURAL EFFUSION [None]
  - HYPERCAPNIA [None]
  - ARTERIOSCLEROSIS [None]
  - DYSPNOEA [None]
  - DEEP VEIN THROMBOSIS [None]
  - PNEUMONIA [None]
  - COMPRESSION FRACTURE [None]
  - HYPERTENSION [None]
  - LEUKOCYTOSIS [None]
  - FALL [None]
  - PAIN IN EXTREMITY [None]
  - JAW DISORDER [None]
  - ERYTHEMA [None]
  - TOOTHACHE [None]
  - LYMPHADENOPATHY [None]
  - SCOLIOSIS [None]
  - ANAEMIA [None]
  - FEELING ABNORMAL [None]
  - BREAST OEDEMA [None]
  - SWELLING [None]
  - DECUBITUS ULCER [None]
  - PLEURAL EFFUSION [None]
  - NAUSEA [None]
  - TOOTH LOSS [None]
  - HYPOACUSIS [None]
  - OSTEONECROSIS OF JAW [None]
  - EXPOSED BONE IN JAW [None]
  - ORAL INFECTION [None]
  - ATELECTASIS [None]
  - HYPONATRAEMIA [None]
  - BLOOD POTASSIUM INCREASED [None]
  - THROMBOSIS [None]
  - CORONARY ARTERY DISEASE [None]
  - PULMONARY OEDEMA [None]
  - CYSTOCELE [None]
  - DEPRESSION [None]
  - NEOPLASM MALIGNANT [None]
  - TOOTH ABSCESS [None]
  - CARDIAC FAILURE CONGESTIVE [None]
  - PERICARDIAL EFFUSION [None]
  - RIB FRACTURE [None]
  - INTERVERTEBRAL DISC DEGENERATION [None]
  - ASTHENIA [None]
  - HEADACHE [None]
  - VISUAL ACUITY REDUCED [None]
  - VOMITING [None]
  - ABDOMINAL DISCOMFORT [None]
  - PURULENT DISCHARGE [None]
  - DENTAL CARIES [None]
  - HYPOKALAEMIA [None]
  - RENAL CYST [None]
  - RENAL FAILURE [None]
  - FATIGUE [None]
  - ANXIETY [None]
  - AXILLARY MASS [None]
